FAERS Safety Report 9310321 (Version 3)
Quarter: 2013Q3

REPORT INFORMATION
  Report Type: Spontaneous
  Country: PL (occurrence: PL)
  Receive Date: 20130527
  Receipt Date: 20130723
  Transmission Date: 20140515
  Serious: Yes (Hospitalization)
  Sender: FDA-Public Use
  Company Number: PL-PFIZER INC-2013157904

PATIENT
  Age: 36 Year
  Sex: Female
  Weight: 87.5 kg

DRUGS (2)
  1. DALACIN C [Suspect]
     Indication: ANIMAL BITE
     Dosage: 300 MG, 3X/DAY
     Route: 048
     Dates: start: 20130505, end: 20130510
  2. ANATOXINUM TETANICUM [Concomitant]
     Dosage: UNK
     Dates: start: 20130505, end: 20130505

REACTIONS (2)
  - Myalgia [Unknown]
  - Hypoaesthesia [Unknown]
